FAERS Safety Report 13393979 (Version 1)
Quarter: 2017Q1

REPORT INFORMATION
  Report Type: Report from Study
  Country: US (occurrence: US)
  Receive Date: 20170331
  Receipt Date: 20170331
  Transmission Date: 20170429
  Serious: Yes (Hospitalization, Other)
  Sender: FDA-Public Use
  Company Number: US-EXELIXIS-XL18417008721

PATIENT
  Age: 66 Year
  Sex: Male
  Weight: 63 kg

DRUGS (1)
  1. XL184 [Suspect]
     Active Substance: CABOZANTINIB
     Indication: RENAL CELL CARCINOMA
     Dosage: 60 MG, QD
     Route: 048
     Dates: start: 20130916, end: 20130927

REACTIONS (3)
  - Confusional state [Unknown]
  - Pain [Unknown]
  - Fracture [Unknown]

NARRATIVE: CASE EVENT DATE: 20130925
